FAERS Safety Report 4835891-3 (Version None)
Quarter: 2005Q4

REPORT INFORMATION
  Report Type: 
  Country: None (occurrence: None)
  Receive Date: 20051118
  Receipt Date: 20051103
  Transmission Date: 20060501
  Serious: Yes (Hospitalization)
  Sender: FDA-Public Use
  Company Number: DSA_81468_2005

PATIENT
  Age: 52 Year
  Sex: Female
  Weight: 106.5953 kg

DRUGS (13)
  1. XYREM [Suspect]
     Indication: FIBROMYALGIA
     Dosage: 3 G TWICE NIGHTLY PO
     Route: 048
     Dates: start: 20050919
  2. XYREM [Suspect]
     Indication: INSOMNIA
     Dosage: 3 G TWICE NIGHTLY PO
     Route: 048
     Dates: start: 20050919
  3. FLAGYL [Concomitant]
  4. MINOCIN [Concomitant]
  5. THYROXIN T3 [Concomitant]
  6. ESTRONE W/PROGESTERONE [Concomitant]
  7. TESTOSTERONE [Concomitant]
  8. CORTISONE ACETATE TAB [Concomitant]
  9. NYSTATIN [Concomitant]
  10. ASSORTED HERBAL SUPPLEMENTS [Concomitant]
  11. HYDROCHLOROTHIAZIDE [Concomitant]
  12. POTASSIUM SUPPLEMENT [Concomitant]
  13. PROGESTERONE [Concomitant]

REACTIONS (2)
  - BLOOD POTASSIUM DECREASED [None]
  - PNEUMONIA [None]
